FAERS Safety Report 15196697 (Version 1)
Quarter: 2018Q3

REPORT INFORMATION
  Report Type: Spontaneous
  Country: US (occurrence: US)
  Receive Date: 20180725
  Receipt Date: 20180725
  Transmission Date: 20181010
  Serious: Yes (Other)
  Sender: FDA-Public Use
  Company Number: US-TEVA-2018-US-932601

PATIENT
  Sex: Female

DRUGS (1)
  1. LOSARTAN. [Suspect]
     Active Substance: LOSARTAN
     Indication: HYPERTENSION
     Dates: start: 201807

REACTIONS (8)
  - Feeling hot [Unknown]
  - Paraesthesia [Unknown]
  - Gait disturbance [Unknown]
  - Head discomfort [Unknown]
  - Bedridden [Unknown]
  - Dyspnoea [Unknown]
  - Blood potassium increased [Unknown]
  - Fatigue [Unknown]

NARRATIVE: CASE EVENT DATE: 201807
